FAERS Safety Report 10705277 (Version 1)
Quarter: 2015Q1

REPORT INFORMATION
  Report Type: Spontaneous
  Country: US (occurrence: US)
  Receive Date: 20150112
  Receipt Date: 20150112
  Transmission Date: 20150721
  Serious: Yes (Death)
  Sender: FDA-Public Use
  Company Number: US-BAYER-2015-003849

PATIENT
  Age: 45 Year
  Sex: Male

DRUGS (2)
  1. ROMILAR [Suspect]
     Active Substance: DEXTROMETHORPHAN HYDROBROMIDE
     Route: 048
  2. ETHANOL [Suspect]
     Active Substance: ALCOHOL
     Route: 048

REACTIONS (1)
  - Toxicity to various agents [Fatal]
